FAERS Safety Report 8854660 (Version 1)
Quarter: 2012Q4

REPORT INFORMATION
  Report Type: 
  Country: US (occurrence: US)
  Receive Date: 20121023
  Receipt Date: 20121023
  Transmission Date: 20130627
  Serious: Yes (Other)
  Sender: FDA-Public Use
  Company Number: US-AMGEN-USASP2012067047

PATIENT

DRUGS (2)
  1. SENSIPAR [Suspect]
     Indication: PRODUCT USED FOR UNKNOWN INDICATION
     Dosage: 30 mg, 3 times/wk
     Route: 048
  2. VITAMIN D /00107901/ [Concomitant]

REACTIONS (3)
  - Hepatic cirrhosis [Unknown]
  - Blood parathyroid hormone abnormal [Unknown]
  - Drug effect increased [Unknown]
